FAERS Safety Report 9822923 (Version 2)
Quarter: 2014Q1

REPORT INFORMATION
  Report Type: Spontaneous
  Country: US (occurrence: US)
  Receive Date: 20140116
  Receipt Date: 20140116
  Transmission Date: 20141002
  Serious: No
  Sender: FDA-Public Use
  Company Number: US-GILEAD-2010-0032978

PATIENT
  Sex: Female
  Weight: 77.11 kg

DRUGS (16)
  1. LETAIRIS [Suspect]
     Indication: PULMONARY HYPERTENSION
     Route: 048
     Dates: start: 20100716, end: 20100927
  2. ADCIRCA [Concomitant]
  3. TORSEMIDE [Concomitant]
  4. LIPITOR [Concomitant]
  5. POTASSIUM CHLORIDE [Concomitant]
  6. CO Q10 [Concomitant]
  7. SINGULAIR [Concomitant]
  8. MINOCIN [Concomitant]
  9. LEVOTHYROXINE [Concomitant]
  10. NEXIUM [Concomitant]
  11. XALATAN [Concomitant]
  12. BONIVA [Concomitant]
  13. TYLENOL [Concomitant]
  14. TUMS [Concomitant]
  15. OMEGA 3 [Concomitant]
  16. VITAMIN B [Concomitant]

REACTIONS (2)
  - Pruritus [Recovered/Resolved]
  - Local swelling [Recovered/Resolved]
